FAERS Safety Report 8764731 (Version 1)
Quarter: 2012Q4

REPORT INFORMATION
  Report Type: 
  Country: PT (occurrence: PT)
  Receive Date: 20120831
  Receipt Date: 20120831
  Transmission Date: 20130627
  Serious: Yes (Other)
  Sender: FDA-Public Use
  Company Number: PT-009507513-1107PRT00010

PATIENT

DRUGS (4)
  1. ISENTRESS [Suspect]
     Indication: HIV INFECTION
     Dosage: 400 mg, bid
     Route: 048
     Dates: start: 20110214
  2. TRUVADA [Concomitant]
     Indication: HIV INFECTION
     Dates: start: 20110214
  3. NORVIR [Concomitant]
     Indication: HIV INFECTION
     Dosage: 100 mg, bid
     Route: 048
     Dates: start: 20120114
  4. PREZISTA [Concomitant]
     Indication: HIV INFECTION
     Dosage: 600 mg, bid
     Route: 048
     Dates: start: 20110214

REACTIONS (3)
  - Caesarean section [Unknown]
  - Exposure during pregnancy [Recovered/Resolved]
  - Anaemia [Not Recovered/Not Resolved]
